FAERS Safety Report 20430025 (Version 1)
Quarter: 2022Q1

REPORT INFORMATION
  Report Type: Report from Study
  Country: US (occurrence: US)
  Receive Date: 20220204
  Receipt Date: 20220204
  Transmission Date: 20220424
  Serious: Yes (Death, Hospitalization)
  Sender: FDA-Public Use
  Company Number: US-SERVIER-S19005407

PATIENT

DRUGS (10)
  1. ONCASPAR [Suspect]
     Active Substance: PEGASPARGASE
     Indication: Acute lymphocytic leukaemia
     Dosage: 7200 IU, TOTAL DOSE
     Route: 042
     Dates: start: 20190219, end: 20190312
  2. ONCASPAR [Suspect]
     Active Substance: PEGASPARGASE
     Dosage: 7200 IU, TOTAL DOSE
     Route: 042
     Dates: end: 20190626
  3. METHOTREXATE [Suspect]
     Active Substance: METHOTREXATE
     Indication: Acute lymphocytic leukaemia
     Dosage: 15 MG, ONE DOSE
     Route: 065
     Dates: start: 20190219, end: 20190219
  4. METHOTREXATE [Suspect]
     Active Substance: METHOTREXATE
     Dosage: 15 MG, ONE DOSE
     Route: 065
     Dates: end: 20190621
  5. RITUXAN [Suspect]
     Active Substance: RITUXIMAB
     Indication: Acute lymphocytic leukaemia
     Dosage: 1342.6 MG, TOTAL DOSE
     Route: 065
     Dates: start: 20190219, end: 20190311
  6. RITUXAN [Suspect]
     Active Substance: RITUXIMAB
     Dosage: 1342.6 MG, TOTAL DOSE
     Route: 065
     Dates: end: 20190501
  7. VINCRISTINE SULFATE [Suspect]
     Active Substance: VINCRISTINE SULFATE
     Indication: Acute lymphocytic leukaemia
     Dosage: 6 MG, TOTAL DOSE
     Route: 065
     Dates: start: 20190219, end: 20190311
  8. VINCRISTINE SULFATE [Suspect]
     Active Substance: VINCRISTINE SULFATE
     Dosage: 8 MG, TOTAL DOSE
     Route: 065
     Dates: end: 20190626
  9. THIOGUANINE [Suspect]
     Active Substance: THIOGUANINE
     Indication: Acute lymphocytic leukaemia
     Dosage: 28 MG
     Route: 065
     Dates: end: 20190625
  10. CYCLOPHOSPHAMIDE [Suspect]
     Active Substance: CYCLOPHOSPHAMIDE
     Indication: Acute lymphocytic leukaemia
     Dosage: 1790 MG, TOTAL DOSE
     Dates: end: 20190621

REACTIONS (5)
  - Blood bilirubin increased [Recovering/Resolving]
  - Pneumonia [Fatal]
  - Hypoxia [Unknown]
  - Sinusitis fungal [Unknown]
  - Bacteraemia [Recovered/Resolved]

NARRATIVE: CASE EVENT DATE: 20190321
